FAERS Safety Report 17694116 (Version 1)
Quarter: 2020Q2

REPORT INFORMATION
  Report Type: Report from Study
  Country: ID (occurrence: ID)
  Receive Date: 20200422
  Receipt Date: 20200422
  Transmission Date: 20200714
  Serious: Yes (Death, Hospitalization)
  Sender: FDA-Public Use
  Company Number: ID-ASTRAZENECA-2020SE41788

PATIENT
  Age: 26135 Day
  Sex: Male

DRUGS (1)
  1. TAGRISSO [Suspect]
     Active Substance: OSIMERTINIB
     Indication: NON-SMALL CELL LUNG CANCER
     Route: 048
     Dates: start: 20200312

REACTIONS (4)
  - Coronavirus infection [Recovered/Resolved]
  - Dyspnoea [Recovered/Resolved]
  - Mouth ulceration [Unknown]
  - Death [Fatal]

NARRATIVE: CASE EVENT DATE: 20200412
